FAERS Safety Report 9789669 (Version 1)
Quarter: 2013Q4

REPORT INFORMATION
  Report Type: Spontaneous
  Country: IT (occurrence: None)
  Receive Date: 20131227
  Receipt Date: 20131227
  Transmission Date: 20140711
  Serious: Yes (Hospitalization)
  Sender: FDA-Public Use
  Company Number: 2092217

PATIENT
  Age: 32 Year
  Sex: Male

DRUGS (2)
  1. CYTARABINE [Suspect]
     Indication: ACUTE MYELOID LEUKAEMIA
  2. ETOPOSIDE [Suspect]
     Indication: ACUTE MYELOID LEUKAEMIA

REACTIONS (8)
  - Zygomycosis [None]
  - Pleural effusion [None]
  - Pulmonary mass [None]
  - Acute graft versus host disease [None]
  - Blood bilirubin increased [None]
  - Blood alkaline phosphatase increased [None]
  - Febrile neutropenia [None]
  - Stem cell transplant [None]
